FAERS Safety Report 5794594-1 (Version None)
Quarter: 2008Q2

REPORT INFORMATION
  Report Type: 
  Country: None (occurrence: None)
  Receive Date: 20080627
  Receipt Date: 20080627
  Transmission Date: 20081010
  Serious: Yes (Hospitalization)
  Sender: FDA-Public Use
  Company Number: None

PATIENT
  Sex: Male
  Weight: 62.5964 kg

DRUGS (4)
  1. FLUOROURACIL [Suspect]
     Indication: COLON CANCER
     Dosage: PRIOR TO ADMISSION
  2. FLUOROURACIL [Suspect]
     Indication: RECTAL CANCER
     Dosage: PRIOR TO ADMISSION
  3. CIPRO [Concomitant]
  4. IRON [Concomitant]

REACTIONS (2)
  - FEBRILE NEUTROPENIA [None]
  - MENTAL STATUS CHANGES [None]
